FAERS Safety Report 17775953 (Version 2)
Quarter: 2023Q2

REPORT INFORMATION
  Report Type: Report from Study
  Country: US (occurrence: US)
  Receive Date: 20200513
  Receipt Date: 20230523
  Transmission Date: 20230722
  Serious: No
  Sender: FDA-Public Use
  Company Number: US-ACADIA PHARMACEUTICALS INC.-ACA-2019-012729

PATIENT
  Sex: Male

DRUGS (24)
  1. NUPLAZID [Suspect]
     Active Substance: PIMAVANSERIN TARTRATE
     Indication: Parkinson^s disease
     Dosage: 34 MG, QD
     Route: 048
     Dates: start: 20190412
  2. NUPLAZID [Suspect]
     Active Substance: PIMAVANSERIN TARTRATE
     Indication: Hallucination
  3. NUPLAZID [Suspect]
     Active Substance: PIMAVANSERIN TARTRATE
     Indication: Delusion
  4. MIRTAZAPINE [Concomitant]
     Active Substance: MIRTAZAPINE
     Indication: Product used for unknown indication
     Dosage: 15 MG, UNK
     Dates: start: 20181108, end: 2018
  5. MIRTAZAPINE [Concomitant]
     Active Substance: MIRTAZAPINE
     Dosage: 15 MG, UNK
     Dates: start: 20181109
  6. MIRTAZAPINE [Concomitant]
     Active Substance: MIRTAZAPINE
     Dosage: 15 MG, UNK
     Dates: start: 20190105
  7. MIRTAZAPINE [Concomitant]
     Active Substance: MIRTAZAPINE
     Dosage: 15 MG, UNK
     Dates: start: 20190429
  8. TOUJEO [Concomitant]
     Active Substance: INSULIN GLARGINE
     Indication: Product used for unknown indication
     Dosage: 300 IU/ML
     Dates: start: 20190319
  9. TOUJEO [Concomitant]
     Active Substance: INSULIN GLARGINE
     Dosage: 300 IU/ML
     Dates: start: 20190322
  10. CARBIDOPA LEVODOPA [Concomitant]
     Active Substance: CARBIDOPA\LEVODOPA
     Indication: Product used for unknown indication
     Dosage: 50-200 MG
     Dates: start: 20180911
  11. CARBIDOPA LEVODOPA [Concomitant]
     Active Substance: CARBIDOPA\LEVODOPA
     Dosage: 50-200 MG
     Dates: start: 20181203
  12. CARBIDOPA LEVODOPA [Concomitant]
     Active Substance: CARBIDOPA\LEVODOPA
     Dosage: 50-200 MG
     Dates: start: 20190225
  13. METFORMIN [Concomitant]
     Active Substance: METFORMIN HYDROCHLORIDE
     Indication: Product used for unknown indication
     Dosage: 500 MG, UNK
     Dates: start: 20190107
  14. METFORMIN [Concomitant]
     Active Substance: METFORMIN HYDROCHLORIDE
     Dosage: 500 MG, UNK
     Dates: start: 20190404
  15. RIVASTIGMINE [Concomitant]
     Active Substance: RIVASTIGMINE
     Indication: Product used for unknown indication
     Dosage: 9.5 MG/24
     Dates: start: 20180423
  16. RIVASTIGMINE [Concomitant]
     Active Substance: RIVASTIGMINE
     Dosage: 9.5 MG/24
     Dates: start: 20190418
  17. RIVASTIGMINE [Concomitant]
     Active Substance: RIVASTIGMINE
     Dosage: 9.5 MG/24
     Dates: start: 20190423
  18. FENOFIBRATE [Concomitant]
     Active Substance: FENOFIBRATE
     Indication: Product used for unknown indication
     Dosage: 160 MG, UNK
     Dates: start: 20180521
  19. FENOFIBRATE [Concomitant]
     Active Substance: FENOFIBRATE
     Dosage: 160 MG, UNK
     Dates: start: 20190429
  20. BUPROPION [Concomitant]
     Active Substance: BUPROPION
     Indication: Product used for unknown indication
     Dosage: 75 MG, UNK
     Dates: start: 20180827, end: 2018
  21. BUPROPION [Concomitant]
     Active Substance: BUPROPION
     Dosage: 100 MG, UNK
     Dates: start: 20181130
  22. CLONAZEPAM [Concomitant]
     Active Substance: CLONAZEPAM
     Indication: Product used for unknown indication
     Dosage: 0.5 MG
     Dates: start: 20181001
  23. LOSARTAN POTASSIUM [Concomitant]
     Active Substance: LOSARTAN POTASSIUM
     Indication: Product used for unknown indication
     Dosage: 100 MG, UNK
     Dates: start: 20180911
  24. INVOKANA [Concomitant]
     Active Substance: CANAGLIFLOZIN
     Indication: Product used for unknown indication
     Dosage: 300 MG
     Dates: start: 20180727

REACTIONS (23)
  - Tremor [Not Recovered/Not Resolved]
  - Memory impairment [Not Recovered/Not Resolved]
  - Bradyphrenia [Not Recovered/Not Resolved]
  - Bradykinesia [Not Recovered/Not Resolved]
  - Balance disorder [Not Recovered/Not Resolved]
  - Illusion [Not Recovered/Not Resolved]
  - Tinnitus [Not Recovered/Not Resolved]
  - Abnormal dreams [Recovering/Resolving]
  - Communication disorder [Not Recovered/Not Resolved]
  - Aphasia [Not Recovered/Not Resolved]
  - Migraine [Not Recovered/Not Resolved]
  - Sleep apnoea syndrome [Not Recovered/Not Resolved]
  - Insomnia [Not Recovered/Not Resolved]
  - Fatigue [Not Recovered/Not Resolved]
  - Decreased appetite [Not Recovered/Not Resolved]
  - Disturbance in attention [Not Recovered/Not Resolved]
  - Vomiting [Unknown]
  - Nausea [Not Recovered/Not Resolved]
  - Hallucinations, mixed [Not Recovered/Not Resolved]
  - Nausea [Not Recovered/Not Resolved]
  - Fall [Not Recovered/Not Resolved]
  - Agitation [Not Recovered/Not Resolved]
  - Constipation [Not Recovered/Not Resolved]

NARRATIVE: CASE EVENT DATE: 20190101
